FAERS Safety Report 16801404 (Version 1)
Quarter: 2019Q3

REPORT INFORMATION
  Report Type: Report from Study
  Country: US (occurrence: US)
  Receive Date: 20190912
  Receipt Date: 20190912
  Transmission Date: 20191005
  Serious: Yes (Death)
  Sender: FDA-Public Use
  Company Number: US-PFIZER INC-2019389735

PATIENT
  Sex: Male
  Weight: 121.1 kg

DRUGS (17)
  1. TOFACITINIB CITRATE [Suspect]
     Active Substance: TOFACITINIB CITRATE
  2. RESTORIL [Concomitant]
     Active Substance: TEMAZEPAM
     Dosage: 7.5 MG, QD
     Route: 048
     Dates: start: 20130730
  3. VIVLODEX [Concomitant]
     Active Substance: MELOXICAM
     Dosage: 15 MG, QD
     Route: 048
     Dates: start: 20120312
  4. FA-8 [Concomitant]
     Dosage: 1 MG, QD
     Route: 048
     Dates: start: 20110815
  5. VICODIN [Concomitant]
     Active Substance: ACETAMINOPHEN\HYDROCODONE BITARTRATE
     Dosage: [HYDROCODONE BITARTRATE 7.5MG]/[ PARACETAMOL 300MG]; Q6H/PRN
     Route: 048
     Dates: start: 20120628
  6. GLUCOTROL [Concomitant]
     Active Substance: GLIPIZIDE
     Dosage: 10 MG, QD
     Route: 048
     Dates: start: 20100110
  7. RAYOS [Concomitant]
     Active Substance: PREDNISONE
     Dosage: 5 MG, QD
     Route: 048
     Dates: start: 20110815
  8. ROBAXIN [Concomitant]
     Active Substance: METHOCARBAMOL
     Dosage: 500 MG, Q8H
     Route: 048
     Dates: start: 20160318
  9. LASIX [Concomitant]
     Active Substance: FUROSEMIDE
     Dosage: 20 MG, QD
     Route: 048
  10. AMRIX [Concomitant]
     Active Substance: CYCLOBENZAPRINE HYDROCHLORIDE
     Dosage: 10 MG, QD
     Route: 048
     Dates: start: 20130411
  11. MILK THISTLE [Concomitant]
     Active Substance: DIETARY SUPPLEMENT\HERBALS\MILK THISTLE
     Dosage: 1000 MG, QD
     Route: 048
     Dates: start: 20120512
  12. GLUCOPHAGE [Concomitant]
     Active Substance: METFORMIN HYDROCHLORIDE
     Dosage: 500 MG, BID
     Route: 048
  13. VITAMINS NOS [Concomitant]
     Active Substance: VITAMINS
     Dosage: 1 DF, DAILY
     Route: 048
     Dates: start: 19740421
  14. ACTOS [Concomitant]
     Active Substance: PIOGLITAZONE HYDROCHLORIDE
     Dosage: 30 MG, QD
     Route: 048
     Dates: start: 20160125, end: 20160224
  15. ECOTRIN/ASPRIN [Concomitant]
     Dosage: 325 MG, QD
     Route: 048
     Dates: start: 20030126
  16. GRALISE [Concomitant]
     Active Substance: GABAPENTIN
     Dosage: 300 MG, Q8H
     Route: 048
     Dates: start: 20140828
  17. RHEUMATREX [Concomitant]
     Active Substance: METHOTREXATE SODIUM
     Dosage: 15 MG, QWK
     Route: 048
     Dates: start: 20120329

REACTIONS (1)
  - Death [Fatal]
